FAERS Safety Report 22637261 (Version 1)
Quarter: 2023Q2

REPORT INFORMATION
  Report Type: Spontaneous
  Country: US (occurrence: None)
  Receive Date: 20230624
  Receipt Date: 20230624
  Transmission Date: 20230721
  Serious: No
  Sender: FDA-Public Use
  Company Number: None

PATIENT
  Sex: Female
  Weight: 63.05 kg

DRUGS (17)
  1. IBRANCE [Suspect]
     Active Substance: PALBOCICLIB
     Indication: Breast cancer female
     Dosage: 125MG DAILY ORAL- 21 DAYS ON, 7 D OFF?
     Route: 048
     Dates: start: 202304, end: 202306
  2. AMLODIPINE [Concomitant]
     Active Substance: AMLODIPINE BESYLATE
  3. ATORVASTATIN [Concomitant]
  4. CALMOSEPTINE [Concomitant]
  5. CARVEDILOL [Concomitant]
     Active Substance: CARVEDILOL
  6. ENOXAPARIN [Concomitant]
     Active Substance: ENOXAPARIN
  7. GLYCOLAX [Concomitant]
  8. HYDRALAZINE [Concomitant]
  9. LETROZOLE [Concomitant]
  10. MAALOX MAX [Concomitant]
  11. NICODERM CQ [Concomitant]
     Active Substance: NICOTINE
  12. ONDANSETRON [Concomitant]
  13. SERTRALINE [Concomitant]
  14. SODIUM CHLORIDE [Concomitant]
  15. TRELEGY ELLIPTA [Concomitant]
  16. TYLENOL [Concomitant]
     Active Substance: ACETAMINOPHEN
  17. ZOLEDRONIC ACID [Concomitant]

REACTIONS (1)
  - Hospice care [None]
